FAERS Safety Report 9199157 (Version 1)
Quarter: 2013Q1

REPORT INFORMATION
  Report Type: Spontaneous
  Country: GB (occurrence: None)
  Receive Date: 20130326
  Receipt Date: 20130326
  Transmission Date: 20140127
  Serious: Yes (Other)
  Sender: FDA-Public Use
  Company Number: 2013-05209

PATIENT
  Age: 30 Year
  Sex: Male

DRUGS (7)
  1. TRAMADOL HYDROCHLORIDE (TRAMADOL HYDROCHLORIDE) [Suspect]
     Indication: ANALGESIC THERAPY
     Route: 048
     Dates: start: 19950101, end: 20130201
  2. NUROFEN PLUS [Suspect]
     Indication: ANALGESIC THERAPY
     Route: 048
     Dates: start: 19950101, end: 20130201
  3. CODIS [Suspect]
     Indication: ANALGESIC THERAPY
     Route: 048
     Dates: start: 19950101, end: 20130201
  4. SOLPADEINE [Suspect]
     Indication: ANALGESIC THERAPY
     Route: 048
     Dates: start: 19950101, end: 20130201
  5. CO-DYDRAMOL [Suspect]
     Indication: ANALGESIC THERAPY
     Route: 048
     Dates: start: 19950101, end: 20130201
  6. DIHYDROCODEINE [Suspect]
     Indication: ANALGESIC THERAPY
     Route: 048
     Dates: start: 19950101, end: 20130201
  7. SOLPADOL [Suspect]
     Indication: ANALGESIC THERAPY
     Route: 048
     Dates: end: 20130201

REACTIONS (10)
  - Drug dependence [None]
  - Abnormal behaviour [None]
  - Alcoholism [None]
  - Withdrawal syndrome [None]
  - Insomnia [None]
  - Vomiting [None]
  - Mood altered [None]
  - Erectile dysfunction [None]
  - Ejaculation failure [None]
  - Drug abuse [None]
